FAERS Safety Report 9516250 (Version 1)
Quarter: 2013Q3

REPORT INFORMATION
  Report Type: Spontaneous
  Country: GB (occurrence: None)
  Receive Date: 20130909
  Receipt Date: 20130909
  Transmission Date: 20140520
  Serious: Yes (Other)
  Sender: FDA-Public Use
  Company Number: SYM-2013-10411

PATIENT
  Age: 32 Year
  Sex: Female

DRUGS (1)
  1. METRONIDAZOLE (METRONIDAZOLE) (METRONIDAZOLE) [Suspect]
     Indication: TOOTH INFECTION
     Dosage: ORAL
     Route: 048
     Dates: start: 20110616, end: 20110618

REACTIONS (1)
  - Depression [None]
